FAERS Safety Report 11983715 (Version 5)
Quarter: 2016Q1

REPORT INFORMATION
  Report Type: Report from Study
  Country: PT (occurrence: PT)
  Receive Date: 20160201
  Receipt Date: 20160317
  Transmission Date: 20160526
  Serious: Yes (Other)
  Sender: FDA-Public Use
  Company Number: PT-ABBVIE-16K-130-1545897-00

PATIENT

DRUGS (1)
  1. HUMIRA [Suspect]
     Active Substance: ADALIMUMAB
     Indication: PSORIATIC ARTHROPATHY
     Route: 058
     Dates: start: 20150725

REACTIONS (7)
  - Fatigue [Recovering/Resolving]
  - Platelet count increased [Recovering/Resolving]
  - Laboratory test abnormal [Not Recovered/Not Resolved]
  - Infectious mononucleosis [Unknown]
  - Red blood cell sedimentation rate increased [Recovering/Resolving]
  - Anaemia [Not Recovered/Not Resolved]
  - Menorrhagia [Recovered/Resolved]

NARRATIVE: CASE EVENT DATE: 2015
